FAERS Safety Report 12473804 (Version 4)
Quarter: 2017Q1

REPORT INFORMATION
  Report Type: Spontaneous
  Country: US (occurrence: US)
  Receive Date: 20160616
  Receipt Date: 20170110
  Transmission Date: 20170428
  Serious: Yes (Life-Threatening, Hospitalization, Other)
  Sender: FDA-Public Use
  Company Number: US-PFIZER INC-2016004004

PATIENT
  Age: 41 Year
  Sex: Female
  Weight: 51.25 kg

DRUGS (1)
  1. NEURONTIN [Suspect]
     Active Substance: GABAPENTIN
     Indication: EPILEPSY
     Dosage: 800 MG, 3X/DAY
     Dates: start: 1999

REACTIONS (4)
  - Pancreatic disorder [Unknown]
  - Apparent death [Unknown]
  - Seizure [Unknown]
  - Vomiting [Unknown]
